FAERS Safety Report 7416818-7 (Version None)
Quarter: 2011Q2

REPORT INFORMATION
  Report Type: 
  Country: None (occurrence: None)
  Receive Date: 20110406
  Receipt Date: 20110331
  Transmission Date: 20111010
  Serious: Yes (Death)
  Sender: FDA-Public Use
  Company Number: B0710459A

PATIENT
  Age: 55 Year
  Sex: Male

DRUGS (5)
  1. SIMVASTATIN [Suspect]
  2. CEFUROXIME SODIUM [Suspect]
  3. SEVOFLURANE (SEVOFLURANCE) (FORMULATION UNKNOWN) [Suspect]
  4. RAMIPRIL [Suspect]
  5. HEPARIN [Suspect]

REACTIONS (3)
  - HEPATIC NECROSIS [None]
  - HEPATOTOXICITY [None]
  - HEPATORENAL SYNDROME [None]
